FAERS Safety Report 7097076-2 (Version None)
Quarter: 2010Q4

REPORT INFORMATION
  Report Type: 
  Country: None (occurrence: None)
  Receive Date: 20101111
  Receipt Date: 20101103
  Transmission Date: 20110411
  Serious: Yes (Hospitalization)
  Sender: FDA-Public Use
  Company Number: US-TEVA-253863USA

PATIENT
  Age: 44 Year
  Sex: Female
  Weight: 99.8 kg

DRUGS (9)
  1. FLUOROURACIL [Suspect]
     Indication: BREAST CANCER
     Route: 042
     Dates: start: 20050411, end: 20050613
  2. EPIRUBICIN HYDROCHLORIDE [Suspect]
     Indication: BREAST CANCER
     Route: 042
     Dates: start: 20050411, end: 20050613
  3. CYCLOPHOSPHAMIDE [Suspect]
     Indication: BREAST CANCER
     Route: 042
     Dates: start: 20050411, end: 20050613
  4. GRANISETRON HCL [Concomitant]
     Dates: start: 20050411
  5. ESCITALOPRAM OXALATE [Concomitant]
     Dates: start: 20050411
  6. PEGFILGRASTIM [Concomitant]
     Dates: start: 20050503
  7. DEXAMETHASONE [Concomitant]
     Dates: start: 20050614
  8. CAPECITABINE [Concomitant]
  9. DOCETAXEL [Concomitant]

REACTIONS (1)
  - PYREXIA [None]
